FAERS Safety Report 19269053 (Version 1)
Quarter: 2021Q2

REPORT INFORMATION
  Report Type: Spontaneous
  Country: GR (occurrence: GR)
  Receive Date: 20210517
  Receipt Date: 20210517
  Transmission Date: 20210717
  Serious: Yes (Other)
  Sender: FDA-Public Use
  Company Number: GR-PFIZER INC-2021496880

PATIENT
  Age: 1 Year
  Sex: Female

DRUGS (2)
  1. M?M?RVAXPRO [Suspect]
     Active Substance: MEASLES VIRUS STRAIN ENDERS^ ATTENUATED EDMONSTON LIVE ANTIGEN\MUMPS VIRUS STRAIN B LEVEL JERYL LYNN LIVE ANTIGEN\RUBELLA VIRUS STRAIN WISTAR RA 27/3 LIVE ANTIGEN
     Indication: PROPHYLAXIS
     Dosage: UNK
     Dates: start: 19901031
  2. SOLU?CORTEF [Suspect]
     Active Substance: HYDROCORTISONE SODIUM SUCCINATE
     Dosage: UNK
     Dates: start: 19901031, end: 19901031

REACTIONS (4)
  - Muscular weakness [Recovered/Resolved]
  - Diplegia [Recovered/Resolved]
  - Drug hypersensitivity [Recovered/Resolved]
  - Eczema infantile [Recovered/Resolved]

NARRATIVE: CASE EVENT DATE: 19901031
